FAERS Safety Report 25812651 (Version 2)
Quarter: 2025Q4

REPORT INFORMATION
  Report Type: Spontaneous
  Country: JP (occurrence: JP)
  Receive Date: 20250917
  Receipt Date: 20251123
  Transmission Date: 20260117
  Serious: Yes (Hospitalization)
  Sender: MERCK SHARP & DOHME LLC
  Company Number: JP-009507513-2328607

PATIENT
  Age: 72 Year
  Sex: Male
  Weight: 67.6 kg

DRUGS (1)
  1. SUGAMMADEX [Suspect]
     Active Substance: SUGAMMADEX
     Indication: Neuromuscular blockade reversal
     Dosage: TIME INTERVAL: TOTAL
     Route: 042
     Dates: start: 20240501, end: 20240501

REACTIONS (3)
  - Pulseless electrical activity [Recovered/Resolved]
  - Anaphylactic shock [Recovered/Resolved]
  - Airway peak pressure increased [Recovered/Resolved]

NARRATIVE: CASE EVENT DATE: 20240501
